FAERS Safety Report 15458954 (Version 4)
Quarter: 2018Q4

REPORT INFORMATION
  Report Type: Spontaneous
  Country: US (occurrence: US)
  Receive Date: 20181003
  Receipt Date: 20181220
  Transmission Date: 20190204
  Serious: Yes (Other)
  Sender: FDA-Public Use
  Company Number: PHEH2018US041046

PATIENT
  Sex: Female
  Weight: 109.7 kg

DRUGS (14)
  1. CIMZIA [Concomitant]
     Active Substance: CERTOLIZUMAB PEGOL
     Indication: PRODUCT USED FOR UNKNOWN INDICATION
     Route: 065
  2. ZOFRAN [Suspect]
     Active Substance: ONDANSETRON HYDROCHLORIDE
     Indication: PRODUCT USED FOR UNKNOWN INDICATION
     Dosage: UNK
     Route: 065
  3. METHOTREXATE. [Suspect]
     Active Substance: METHOTREXATE
     Indication: RHEUMATOID ARTHRITIS
     Dosage: UNK
     Route: 065
  4. METHOTREXATE. [Suspect]
     Active Substance: METHOTREXATE
     Dosage: 25 MG, QW
     Route: 058
     Dates: start: 2018
  5. LEFLUNOMIDE. [Suspect]
     Active Substance: LEFLUNOMIDE
     Indication: PRODUCT USED FOR UNKNOWN INDICATION
     Dosage: 20 MG, QD
     Route: 048
     Dates: end: 2017
  6. ARAVA [Suspect]
     Active Substance: LEFLUNOMIDE
     Indication: RHEUMATOID ARTHRITIS
     Route: 065
  7. METHOTREXATE. [Suspect]
     Active Substance: METHOTREXATE
     Dosage: 25 MG, QW
     Route: 058
     Dates: start: 2018
  8. XELJANZ XR [Suspect]
     Active Substance: TOFACITINIB CITRATE
     Indication: PALINDROMIC RHEUMATISM
     Dosage: 11 MG, QD
     Route: 048
  9. ENBREL [Suspect]
     Active Substance: ETANERCEPT
     Indication: PALINDROMIC RHEUMATISM
     Dosage: UNK
     Route: 065
     Dates: end: 2017
  10. METHOTREXATE. [Suspect]
     Active Substance: METHOTREXATE
     Dosage: 20 MG, UNK
     Route: 058
     Dates: start: 2018
  11. METHOTREXATE. [Suspect]
     Active Substance: METHOTREXATE
     Dosage: 20 MG, QW
     Route: 058
     Dates: start: 2018
  12. METHOTREXATE. [Suspect]
     Active Substance: METHOTREXATE
     Dosage: 0.10 UNK, UNK
     Route: 048
     Dates: start: 2018
  13. METHOTREXATE. [Suspect]
     Active Substance: METHOTREXATE
     Dosage: 0.8 OT, UNK
     Route: 065
     Dates: start: 2018
  14. METHOTREXATE. [Suspect]
     Active Substance: METHOTREXATE
     Dosage: 15 MG, QW
     Route: 065
     Dates: start: 2018

REACTIONS (10)
  - Contusion [Not Recovered/Not Resolved]
  - Fatigue [Unknown]
  - Drug ineffective [Unknown]
  - Palindromic rheumatism [Not Recovered/Not Resolved]
  - Thinking abnormal [Unknown]
  - Product use in unapproved indication [Unknown]
  - Visual impairment [Not Recovered/Not Resolved]
  - Diarrhoea [Recovered/Resolved]
  - Nausea [Not Recovered/Not Resolved]
  - Memory impairment [Unknown]

NARRATIVE: CASE EVENT DATE: 2017
